FAERS Safety Report 13439297 (Version 1)
Quarter: 2017Q2

REPORT INFORMATION
  Report Type: Spontaneous
  Country: JP (occurrence: JP)
  Receive Date: 20170413
  Receipt Date: 20170413
  Transmission Date: 20170830
  Serious: Yes (Death, Other)
  Sender: FDA-Public Use
  Company Number: JP-APOPHARMA USA, INC.-2017AP010400

PATIENT
  Age: 40 Year
  Sex: Male

DRUGS (2)
  1. FLUDARABINE [Concomitant]
     Active Substance: FLUDARABINE PHOSPHATE
     Indication: STEM CELL TRANSPLANT
     Dosage: UNK, UNKNOWN
     Route: 065
  2. ALKERAN [Suspect]
     Active Substance: MELPHALAN
     Indication: STEM CELL TRANSPLANT
     Dosage: UNK, UNKNOWN
     Route: 065

REACTIONS (3)
  - Chronic graft versus host disease [Unknown]
  - Death [Fatal]
  - Acute graft versus host disease [Unknown]
